FAERS Safety Report 18721588 (Version 1)
Quarter: 2021Q1

REPORT INFORMATION
  Report Type: Spontaneous
  Country: AU (occurrence: AU)
  Receive Date: 20210110
  Receipt Date: 20210110
  Transmission Date: 20210419
  Serious: Yes (Hospitalization, Other)
  Sender: FDA-Public Use
  Company Number: AU-JNJFOC-20201255519

PATIENT

DRUGS (1)
  1. PARACETAMOL [Suspect]
     Active Substance: ACETAMINOPHEN
     Indication: PRODUCT USED FOR UNKNOWN INDICATION
     Route: 065

REACTIONS (8)
  - Wrong product administered [Unknown]
  - Product dispensing error [Unknown]
  - Incorrect route of product administration [Unknown]
  - Off label use [Unknown]
  - Accidental poisoning [Unknown]
  - Incorrect dose administered [Unknown]
  - Inappropriate schedule of product administration [Unknown]
  - Adverse drug reaction [Unknown]
